FAERS Safety Report 9664759 (Version 2)
Quarter: 2013Q4

REPORT INFORMATION
  Report Type: Spontaneous
  Country: US (occurrence: US)
  Receive Date: 20131101
  Receipt Date: 20131101
  Transmission Date: 20140711
  Serious: Yes (Hospitalization)
  Sender: FDA-Public Use
  Company Number: US-US-EMD SERONO, INC.-231019J07USA

PATIENT
  Age: 57 Year
  Sex: Female
  Weight: 55.39 kg

DRUGS (11)
  1. REBIF [Suspect]
     Indication: MULTIPLE SCLEROSIS
     Route: 058
     Dates: start: 20041208
  2. NEXIUM [Concomitant]
     Indication: GASTROOESOPHAGEAL REFLUX DISEASE
     Dates: start: 2004
  3. PAXIL [Concomitant]
     Indication: DEPRESSION
     Dates: start: 2004
  4. XANAX [Concomitant]
     Indication: ANXIETY
     Dates: start: 200711
  5. AMBIEN [Concomitant]
     Indication: SLEEP DISORDER
     Dates: start: 200711
  6. PREDNISONE [Concomitant]
     Indication: DYSPNOEA
     Dates: start: 200711
  7. ALBUTEROL [Concomitant]
     Indication: RESPIRATORY RATE INCREASED
     Dates: start: 200711
  8. IRON PILL [Concomitant]
     Indication: DRUG THERAPY
     Dates: start: 200711
  9. VITAMIN B12 [Concomitant]
     Indication: PRODUCT USED FOR UNKNOWN INDICATION
     Route: 030
     Dates: start: 200706
  10. CENTRUM SILVER [Concomitant]
     Indication: DRUG THERAPY
     Route: 048
  11. NOVANTRONE [Concomitant]
     Indication: PRODUCT USED FOR UNKNOWN INDICATION
     Dates: start: 2009

REACTIONS (5)
  - Lung neoplasm malignant [Recovering/Resolving]
  - Metastases to lymph nodes [Recovering/Resolving]
  - Central nervous system lesion [Unknown]
  - Dizziness [Unknown]
  - Gait disturbance [Unknown]
